FAERS Safety Report 13277559 (Version 4)
Quarter: 2020Q1

REPORT INFORMATION
  Report Type: Spontaneous
  Country: CA (occurrence: CA)
  Receive Date: 20170228
  Receipt Date: 20200208
  Transmission Date: 20200409
  Serious: Yes (Hospitalization, Other)
  Sender: FDA-Public Use
  Company Number: CA-BAXTER-2017BAX008638

PATIENT
  Age: 53 Year
  Sex: Female

DRUGS (10)
  1. PROCYTOX (CYCLOPHOSPHAMIDE) 2000MG/VIAL [Suspect]
     Active Substance: CYCLOPHOSPHAMIDE
     Indication: RHEUMATOID ARTHRITIS
     Dosage: DOSAGE FORM NOT SPECIFIED
     Route: 065
  2. PLAQUENIL [Suspect]
     Active Substance: HYDROXYCHLOROQUINE SULFATE
     Indication: PRODUCT USED FOR UNKNOWN INDICATION
     Dosage: DOSAGE FORM: TABLET
     Route: 048
  3. METHOTREXATE. [Suspect]
     Active Substance: METHOTREXATE
     Indication: PRODUCT USED FOR UNKNOWN INDICATION
     Dosage: DOSAGE FORM NOT SPECIFIED
     Route: 065
  4. REMICADE [Suspect]
     Active Substance: INFLIXIMAB
     Indication: PRODUCT USED FOR UNKNOWN INDICATION
     Dosage: DOSAGE FORM POWDER FOR SOLUTION INTRAVENOUS
     Route: 042
  5. ENBREL [Suspect]
     Active Substance: ETANERCEPT
     Indication: PRODUCT USED FOR UNKNOWN INDICATION
     Route: 065
  6. SIMPONI [Suspect]
     Active Substance: GOLIMUMAB
     Indication: PRODUCT USED FOR UNKNOWN INDICATION
     Dosage: DOSAGE FORM SOLUTION SUBCUTANEOUS
     Route: 058
  7. ARAVA [Suspect]
     Active Substance: LEFLUNOMIDE
     Indication: PRODUCT USED FOR UNKNOWN INDICATION
     Dosage: DOSAGE FORM: TABLET
     Route: 048
  8. CIMZIA [Suspect]
     Active Substance: CERTOLIZUMAB PEGOL
     Indication: PRODUCT USED FOR UNKNOWN INDICATION
     Dosage: DOSAGE FORM SOLUTION SUBCUTANEOUS
     Route: 058
  9. HUMIRA [Suspect]
     Active Substance: ADALIMUMAB
     Indication: PRODUCT USED FOR UNKNOWN INDICATION
     Dosage: DOSAGE FORM SOLUTION SUBCUTANEOUS
     Route: 058
  10. METHOTREXATE. [Concomitant]
     Active Substance: METHOTREXATE
     Indication: PRODUCT USED FOR UNKNOWN INDICATION
     Route: 065

REACTIONS (9)
  - Bone erosion [Recovered/Resolved]
  - Upper limb fracture [Recovered/Resolved]
  - Disease susceptibility [Recovered/Resolved]
  - Bronchiectasis [Recovered/Resolved]
  - Joint swelling [Recovered/Resolved]
  - Drug ineffective [Recovered/Resolved]
  - Toxicity to various agents [Recovered/Resolved]
  - Pulmonary fibrosis [Recovered/Resolved]
  - Myocardial infarction [Recovered/Resolved]
